FAERS Safety Report 5344087-0 (Version None)
Quarter: 2007Q2

REPORT INFORMATION
  Report Type: 
  Country: None (occurrence: None)
  Receive Date: 20070604
  Receipt Date: 20070525
  Transmission Date: 20071010
  Serious: Yes (Other)
  Sender: FDA-Public Use
  Company Number: B0471837A

PATIENT
  Age: 32 Year
  Sex: Female

DRUGS (1)
  1. FORMIGRAN [Suspect]
     Indication: MIGRAINE
     Dosage: 1TAB SINGLE DOSE
     Route: 065

REACTIONS (9)
  - CIRCULATORY COLLAPSE [None]
  - DIARRHOEA [None]
  - FATIGUE [None]
  - HYPERACUSIS [None]
  - MALAISE [None]
  - MIGRAINE [None]
  - NAUSEA [None]
  - PHOTOSENSITIVITY REACTION [None]
  - VOMITING [None]
